FAERS Safety Report 11005463 (Version 2)
Quarter: 2016Q2

REPORT INFORMATION
  Report Type: Spontaneous
  Country: US (occurrence: US)
  Receive Date: 20150409
  Receipt Date: 20160415
  Transmission Date: 20160815
  Serious: No
  Sender: FDA-Public Use
  Company Number: US-ALLERGAN-1502286US

PATIENT
  Age: 67 Year
  Sex: Male
  Weight: 90.7 kg

DRUGS (8)
  1. COMBIGAN [Concomitant]
     Active Substance: BRIMONIDINE TARTRATE\TIMOLOL MALEATE
  2. OFLOXACIN, 0.3% [Concomitant]
     Active Substance: OFLOXACIN
  3. POLYMYXIN B -TRIMETHOPRIM OPHTHA. [Concomitant]
  4. AZOPT [Concomitant]
     Active Substance: BRINZOLAMIDE
  5. ATROPINE. [Concomitant]
     Active Substance: ATROPINE
  6. PREDNISOLONE ACETATE, 1.0% [Concomitant]
     Active Substance: PREDNISOLONE ACETATE
  7. LUMIGAN [Suspect]
     Active Substance: BIMATOPROST
     Indication: GLAUCOMA
     Dosage: 2 GTT, QD
     Route: 047
     Dates: start: 20150210, end: 20150211
  8. GATIFLOXACIN. [Concomitant]
     Active Substance: GATIFLOXACIN

REACTIONS (2)
  - Erythema [Recovered/Resolved]
  - Eye irritation [Recovered/Resolved]

NARRATIVE: CASE EVENT DATE: 20150210
